FAERS Safety Report 4544770-0 (Version None)
Quarter: 2004Q4

REPORT INFORMATION
  Report Type: 
  Country: None (occurrence: None)
  Receive Date: 20041230
  Receipt Date: 20041215
  Transmission Date: 20050328
  Serious: Yes (Hospitalization)
  Sender: FDA-Public Use
  Company Number: S04-AUS-08256-01

PATIENT
  Age: 41 Year
  Sex: Female
  Weight: 52 kg

DRUGS (3)
  1. ESCITALOPRAM [Suspect]
     Indication: DEPRESSION
     Dosage: 10 MG QID PO
     Route: 048
     Dates: start: 20040401, end: 20040801
  2. SEROQUEL [Concomitant]
  3. EDRONAX                              (REBOXETINE) [Concomitant]

REACTIONS (2)
  - OVERDOSE [None]
  - URINARY RETENTION [None]
